FAERS Safety Report 4968307-7 (Version None)
Quarter: 2006Q2

REPORT INFORMATION
  Report Type: 
  Country: None (occurrence: None)
  Receive Date: 20060405
  Receipt Date: 20060320
  Transmission Date: 20061013
  Serious: Yes (Other)
  Sender: FDA-Public Use
  Company Number: 2006000666

PATIENT
  Sex: Male

DRUGS (3)
  1. TARCEVA [Suspect]
     Indication: LUNG NEOPLASM MALIGNANT
     Dosage: 100 MG (QD), ORAL
     Route: 048
     Dates: start: 20060101
  2. PHENYTOIN SODIUM [Concomitant]
  3. SERTRALINE HCL [Concomitant]

REACTIONS (1)
  - DEAFNESS UNILATERAL [None]
